FAERS Safety Report 15749485 (Version 1)
Quarter: 2018Q4

REPORT INFORMATION
  Report Type: Spontaneous
  Country: US (occurrence: US)
  Receive Date: 20181220
  Receipt Date: 20181220
  Transmission Date: 20190205
  Serious: Yes (Hospitalization)
  Sender: FDA-Public Use
  Company Number: None

PATIENT
  Sex: Male

DRUGS (11)
  1. CLINDAMYCIN. [Concomitant]
     Active Substance: CLINDAMYCIN
  2. EPINEPHRINE. [Concomitant]
     Active Substance: EPINEPHRINE
  3. URSODIOL. [Concomitant]
     Active Substance: URSODIOL
  4. POLYETH  GLYC [Concomitant]
     Active Substance: POLYETHYLENE GLYCOLS
  5. CYPROHEPTAD [Concomitant]
  6. MAPAP [Concomitant]
     Active Substance: ACETAMINOPHEN
  7. MINOCYCLINE [Concomitant]
     Active Substance: MINOCYCLINE\MINOCYCLINE HYDROCHLORIDE
  8. SMZ/TMP [Concomitant]
     Active Substance: SULFAMETHOXAZOLE\TRIMETHOPRIM
  9. XOLAIR [Suspect]
     Active Substance: OMALIZUMAB
     Indication: CYSTIC FIBROSIS
     Dosage: ?          OTHER FREQUENCY:Q2W;?
     Route: 058
     Dates: start: 20180630
  10. PREDNISONE. [Concomitant]
     Active Substance: PREDNISONE
  11. LEVOFLOXACIN. [Concomitant]
     Active Substance: LEVOFLOXACIN

REACTIONS (1)
  - Influenza [None]
